FAERS Safety Report 21987098 (Version 2)
Quarter: 2023Q1

REPORT INFORMATION
  Report Type: Spontaneous
  Country: US (occurrence: US)
  Receive Date: 20230213
  Receipt Date: 20230216
  Transmission Date: 20230417
  Serious: No
  Sender: FDA-Public Use
  Company Number: US-SANOFI-01483141

PATIENT
  Age: 70 Year
  Sex: Female

DRUGS (1)
  1. LANTUS SOLOSTAR [Suspect]
     Active Substance: INSULIN GLARGINE
     Indication: Type 2 diabetes mellitus
     Dosage: 28 U, QD

REACTIONS (5)
  - Visual impairment [Unknown]
  - Vision blurred [Unknown]
  - Injection site bruising [Unknown]
  - Multiple use of single-use product [Unknown]
  - Accidental exposure to product [Unknown]
